FAERS Safety Report 20750299 (Version 1)
Quarter: 2022Q2

REPORT INFORMATION
  Report Type: Spontaneous
  Country: IT (occurrence: IT)
  Receive Date: 20220426
  Receipt Date: 20220426
  Transmission Date: 20220720
  Serious: Yes (Hospitalization)
  Sender: FDA-Public Use
  Company Number: None

PATIENT
  Age: 73 Year
  Sex: Male

DRUGS (2)
  1. HUMALOG [Suspect]
     Active Substance: INSULIN LISPRO
     Indication: Diabetes mellitus
     Dosage: 1 DOSAGE FORM, DAILY
     Route: 048
     Dates: start: 20210720
  2. LANTUS [Suspect]
     Active Substance: INSULIN GLARGINE
     Indication: Diabetes mellitus
     Dosage: 1 DOSAGE FORM, DAILY
     Route: 058
     Dates: start: 20210701

REACTIONS (4)
  - Anaemia [Recovered/Resolved]
  - Gastrointestinal disorder [Recovered/Resolved]
  - Hyperglycaemia [Recovered/Resolved]
  - Incorrect route of product administration [Not Recovered/Not Resolved]

NARRATIVE: CASE EVENT DATE: 20210720
